FAERS Safety Report 5675946-7 (Version None)
Quarter: 2008Q1

REPORT INFORMATION
  Report Type: 
  Country: None (occurrence: None)
  Receive Date: 20080321
  Receipt Date: 20080312
  Transmission Date: 20080703
  Serious: Yes (Hospitalization)
  Sender: FDA-Public Use
  Company Number: NL-JNJFOC-20080303365

PATIENT
  Sex: Female
  Weight: 70 kg

DRUGS (10)
  1. REMICADE [Suspect]
  2. REMICADE [Suspect]
  3. REMICADE [Suspect]
  4. REMICADE [Suspect]
  5. REMICADE [Suspect]
  6. REMICADE [Suspect]
     Indication: CROHN'S DISEASE
  7. ENTOCORT EC [Concomitant]
     Indication: CROHN'S DISEASE
  8. FOLIUMZUUR [Concomitant]
     Indication: CROHN'S DISEASE
  9. ACTONEL [Concomitant]
     Indication: OSTEOPOROSIS
  10. CALCICHEW [Concomitant]
     Indication: OSTEOPOROSIS

REACTIONS (3)
  - ADHESION [None]
  - PERITONITIS [None]
  - SOPOR [None]
